FAERS Safety Report 14810571 (Version 1)
Quarter: 2018Q2

REPORT INFORMATION
  Report Type: Report from Study
  Country: US (occurrence: US)
  Receive Date: 20180425
  Receipt Date: 20180425
  Transmission Date: 20180711
  Serious: No
  Sender: FDA-Public Use
  Company Number: US-AMGEN-USASL2018025283

PATIENT
  Age: 48 Year
  Sex: Female
  Weight: 72.11 kg

DRUGS (1)
  1. REPATHA [Suspect]
     Active Substance: EVOLOCUMAB
     Indication: TYPE IIA HYPERLIPIDAEMIA
     Dosage: 420 MG/ 3.5 ML, QMO
     Route: 058
     Dates: start: 20180122

REACTIONS (2)
  - Paraesthesia oral [Unknown]
  - Dysphagia [Unknown]

NARRATIVE: CASE EVENT DATE: 20180213
